FAERS Safety Report 9509329 (Version 1)
Quarter: 2013Q3

REPORT INFORMATION
  Report Type: Spontaneous
  Country: US (occurrence: US)
  Receive Date: 20130909
  Receipt Date: 20130909
  Transmission Date: 20140515
  Serious: No
  Sender: FDA-Public Use
  Company Number: US-BRISTOL-MYERS SQUIBB COMPANY-19001395

PATIENT
  Age: 55 Year
  Sex: Female
  Weight: 59.86 kg

DRUGS (5)
  1. ABILIFY TABS [Suspect]
     Indication: BIPOLAR DISORDER
     Dosage: 5MG FROM MAR2006/REDUCED TO 2.5MG ON 6JU13/DR ADVISED TO TAKE 10MG
     Dates: start: 200603
  2. ABILIFY TABS [Suspect]
     Indication: SCHIZOPHRENIA
     Dosage: 5MG FROM MAR2006/REDUCED TO 2.5MG ON 6JU13/DR ADVISED TO TAKE 10MG
     Dates: start: 200603
  3. PRIMIDONE [Concomitant]
  4. CARBAMAZEPINE [Concomitant]
     Dosage: 2 TABLETS IN THE MORNING, 2 TABLETS IN THE AFTERNOON, AND 2 TABLETS IN THE EVENING
  5. CLOBAZAM [Concomitant]
     Dosage: 4 TABLETS IN THE MORNING AND 4 TABLETS AT BEDTIME

REACTIONS (5)
  - Fatigue [Unknown]
  - Confusional state [Unknown]
  - Malaise [Unknown]
  - Drug administration error [Unknown]
  - Weight fluctuation [Unknown]
